FAERS Safety Report 6885078-8 (Version None)
Quarter: 2010Q3

REPORT INFORMATION
  Report Type: 
  Country: None (occurrence: None)
  Receive Date: 20100729
  Receipt Date: 20071119
  Transmission Date: 20110219
  Serious: No
  Sender: FDA-Public Use
  Company Number: US-PFIZER INC-2007097439

PATIENT
  Sex: Male
  Weight: 86.3 kg

DRUGS (4)
  1. CELEBREX [Suspect]
     Indication: KNEE ARTHROPLASTY
     Route: 048
     Dates: start: 20070901
  2. CELEBREX [Suspect]
     Indication: INTERVERTEBRAL DISC DISORDER
  3. CRESTOR [Concomitant]
     Indication: BLOOD CHOLESTEROL INCREASED
     Route: 048
  4. ZETIA [Concomitant]
     Indication: BLOOD CHOLESTEROL INCREASED
     Route: 048

REACTIONS (1)
  - BLOOD PRESSURE INCREASED [None]
